FAERS Safety Report 15987336 (Version 1)
Quarter: 2019Q1

REPORT INFORMATION
  Report Type: Spontaneous
  Country: US (occurrence: US)
  Receive Date: 20190220
  Receipt Date: 20190220
  Transmission Date: 20190418
  Serious: Yes (Other)
  Sender: FDA-Public Use
  Company Number: US-ELI_LILLY_AND_COMPANY-US201902005237

PATIENT
  Sex: Male
  Weight: 86 kg

DRUGS (9)
  1. NEURONTIN [Suspect]
     Active Substance: GABAPENTIN
     Dosage: 3 DF, DAILY
     Route: 048
  2. BACLOFEN. [Concomitant]
     Active Substance: BACLOFEN
     Indication: MUSCLE SPASMS
     Dosage: 10 MG, TID
     Route: 048
     Dates: start: 2000
  3. CLONAZEPAM. [Concomitant]
     Active Substance: CLONAZEPAM
     Indication: SLEEP DISORDER
     Dosage: 1 MG, DAILY
     Route: 065
     Dates: start: 1998
  4. NEURONTIN [Suspect]
     Active Substance: GABAPENTIN
     Indication: MULTIPLE SCLEROSIS
     Dosage: 3 DF, EACH EVENING
     Route: 048
  5. CLONAZEPAM. [Concomitant]
     Active Substance: CLONAZEPAM
     Indication: MUSCLE SPASMS
  6. DETROL LA [Concomitant]
     Active Substance: TOLTERODINE TARTRATE
     Indication: NEUROGENIC BLADDER
     Dosage: 4 MG, DAILY
     Route: 048
     Dates: start: 2005
  7. DULOXETINE HYDROCHLORIDE. [Suspect]
     Active Substance: DULOXETINE HYDROCHLORIDE
     Indication: MULTIPLE SCLEROSIS
     Dosage: UNK, UNKNOWN
     Route: 065
  8. NEURONTIN [Suspect]
     Active Substance: GABAPENTIN
     Indication: NEURALGIA
     Dosage: 3 DF, EACH MORNING
     Route: 048
     Dates: end: 2018
  9. AMITRIPTYLINE [Concomitant]
     Active Substance: AMITRIPTYLINE
     Indication: SLEEP DISORDER
     Dosage: 3 DF, DAILY
     Route: 065
     Dates: start: 2017

REACTIONS (5)
  - Drug ineffective [Recovered/Resolved]
  - Hepatotoxicity [Recovered/Resolved]
  - Burning sensation [Recovered/Resolved]
  - Feeling abnormal [Unknown]
  - Fatigue [Unknown]
